FAERS Safety Report 8349957-7 (Version None)
Quarter: 2012Q2

REPORT INFORMATION
  Report Type: 
  Country: None (occurrence: None)
  Receive Date: 20120510
  Receipt Date: 20120504
  Transmission Date: 20120825
  Serious: Yes (Other)
  Sender: FDA-Public Use
  Company Number: US-AMGEN-USASP2011052297

PATIENT
  Age: 76 Year
  Sex: Female

DRUGS (7)
  1. CALCIUM + VITAMIN D [Concomitant]
  2. MULTIVITAMIN                       /00097801/ [Concomitant]
  3. PROLIA [Suspect]
     Indication: OSTEOPOROSIS POSTMENOPAUSAL
     Dosage: 60 MG, Q6MO
     Route: 058
     Dates: start: 20110923
  4. METOPROLOL TARTRATE [Concomitant]
  5. LEVOTHYROXINE SODIUM [Concomitant]
  6. EFFEXOR [Concomitant]
  7. LORAZEPAM [Concomitant]

REACTIONS (11)
  - HEADACHE [None]
  - AGEUSIA [None]
  - FACIAL PAIN [None]
  - NECK PAIN [None]
  - MALAISE [None]
  - NAUSEA [None]
  - ASTHENIA [None]
  - SWELLING FACE [None]
  - CELLULITIS [None]
  - DECREASED APPETITE [None]
  - ERYTHEMA [None]
